FAERS Safety Report 6301277-8 (Version None)
Quarter: 2009Q3

REPORT INFORMATION
  Report Type: 
  Country: None (occurrence: None)
  Receive Date: 20090807
  Receipt Date: 20090803
  Transmission Date: 20100115
  Serious: Yes (Other)
  Sender: FDA-Public Use
  Company Number: TW-ROXANE LABORATORIES, INC.-2009-RO-00775RO

PATIENT
  Age: 17 Year
  Sex: Male

DRUGS (6)
  1. RISPERIDONE [Suspect]
     Indication: SCHIZOPHRENIFORM DISORDER
     Dosage: 3 MG
  2. CLONAZEPAM [Suspect]
     Indication: SCHIZOPHRENIFORM DISORDER
     Dosage: 4 MG
  3. OLANZAPINE [Suspect]
     Indication: SCHIZOPHRENIFORM DISORDER
     Dosage: 10 MG
     Route: 048
  4. OLANZAPINE [Suspect]
     Dosage: 5 MG
     Route: 030
  5. AMISULPRIDE [Concomitant]
     Indication: PSYCHOTIC BEHAVIOUR
     Dosage: 400 MG
  6. AMISULPRIDE [Concomitant]
     Dosage: 800 MG

REACTIONS (5)
  - DRUG INEFFECTIVE [None]
  - HYPOTENSION [None]
  - HYPOTHERMIA [None]
  - RHABDOMYOLYSIS [None]
  - SINUS BRADYCARDIA [None]
